FAERS Safety Report 13469090 (Version 1)
Quarter: 2017Q2

REPORT INFORMATION
  Report Type: Spontaneous
  Country: FR (occurrence: FR)
  Receive Date: 20170421
  Receipt Date: 20170421
  Transmission Date: 20170830
  Serious: Yes (Hospitalization, Other)
  Sender: FDA-Public Use
  Company Number: FR-PFIZER INC-2017167357

PATIENT
  Age: 45 Year
  Sex: Female

DRUGS (14)
  1. HERCEPTIN [Concomitant]
     Active Substance: TRASTUZUMAB
     Dosage: 350 MG, CYCLIC
     Route: 041
     Dates: start: 20161116, end: 20161116
  2. CARBOPLATINE [Concomitant]
     Active Substance: CARBOPLATIN
     Dosage: 635 MG, CYCLIC
     Route: 041
     Dates: start: 20160916, end: 20160916
  3. CARBOPLATINE [Concomitant]
     Active Substance: CARBOPLATIN
     Dosage: 635 MG, CYCLIC
     Route: 041
     Dates: start: 20161213, end: 20161213
  4. CARBOPLATINE [Concomitant]
     Active Substance: CARBOPLATIN
     Dosage: 640 MG, CYCLIC
     Route: 041
     Dates: start: 20170103, end: 20170103
  5. HERCEPTIN [Concomitant]
     Active Substance: TRASTUZUMAB
     Dosage: 355 MG, CYCLIC
     Route: 041
     Dates: start: 20161005, end: 20161005
  6. CARBOPLATINE [Concomitant]
     Active Substance: CARBOPLATIN
     Dosage: 630 MG, CYCLIC
     Route: 041
     Dates: start: 20161005, end: 20161005
  7. HERCEPTIN [Concomitant]
     Active Substance: TRASTUZUMAB
     Dosage: 355 MG, CYCLIC
     Route: 041
     Dates: start: 20170103, end: 20170103
  8. HERCEPTIN [Concomitant]
     Active Substance: TRASTUZUMAB
     Dosage: 470 MG, CYCLIC
     Route: 041
     Dates: start: 20160915, end: 20160915
  9. HERCEPTIN [Concomitant]
     Active Substance: TRASTUZUMAB
     Dosage: 355 MG, CYCLIC
     Route: 041
     Dates: start: 20170125, end: 20170125
  10. CARBOPLATINE [Concomitant]
     Active Substance: CARBOPLATIN
     Dosage: 655 MG, CYCLIC
     Route: 041
     Dates: start: 20161116, end: 20161116
  11. DOCETAXEL HOSPIRA [Suspect]
     Active Substance: DOCETAXEL
     Indication: INVASIVE DUCTAL BREAST CARCINOMA
     Dosage: 125 MG PER CYCLE
     Route: 041
     Dates: start: 20160916
  12. CARBOPLATINE [Concomitant]
     Active Substance: CARBOPLATIN
     Dosage: 610 MG, CYCLIC
     Route: 041
     Dates: start: 20161026, end: 20161026
  13. HERCEPTIN [Concomitant]
     Active Substance: TRASTUZUMAB
     Dosage: 350 MG, CYCLIC
     Route: 041
     Dates: start: 20161026, end: 20161026
  14. HERCEPTIN [Concomitant]
     Active Substance: TRASTUZUMAB
     Dosage: 355 MG, CYCLIC
     Route: 041
     Dates: start: 20161213, end: 20161213

REACTIONS (6)
  - Pharyngeal erythema [Unknown]
  - Colitis [Recovered/Resolved]
  - Neutropenia [Recovered/Resolved]
  - Odynophagia [Unknown]
  - Hepatocellular injury [Unknown]
  - Ear pain [Unknown]

NARRATIVE: CASE EVENT DATE: 20160918
